FAERS Safety Report 4922349-6 (Version None)
Quarter: 2006Q1

REPORT INFORMATION
  Report Type: 
  Country: None (occurrence: None)
  Receive Date: 20060224
  Receipt Date: 20041029
  Transmission Date: 20060701
  Serious: Yes (Hospitalization, Other)
  Sender: FDA-Public Use
  Company Number: GB-MERCK-0411GBR00012

PATIENT
  Age: 69 Year
  Sex: Female
  Weight: 52 kg

DRUGS (19)
  1. VIOXX [Suspect]
     Indication: RHEUMATOID ARTHRITIS
     Route: 048
     Dates: start: 20001117, end: 20041001
  2. DERMATOLOGIC (UNSPECIFIED) [Concomitant]
     Indication: DRY SKIN
     Route: 061
     Dates: start: 20000101
  3. FOLIC ACID [Concomitant]
     Indication: RHEUMATOID ARTHRITIS
     Route: 048
     Dates: start: 20000510
  4. METHOTREXATE [Concomitant]
     Indication: RHEUMATOID ARTHRITIS
     Route: 048
     Dates: start: 20000901
  5. HYDROXYCHLOROQUINE SULFATE [Concomitant]
     Indication: PROPHYLAXIS
     Route: 065
  6. ALBUTEROL [Concomitant]
     Indication: ASTHMA
     Route: 055
     Dates: start: 20011002
  7. CALCIUM CARBONATE AND CHOLECALCIFEROL [Concomitant]
     Indication: RHEUMATOID ARTHRITIS
     Route: 065
     Dates: start: 20030731
  8. BUDESONIDE AND FORMOTEROL FUMARATE [Concomitant]
     Indication: ASTHMA
     Route: 055
  9. AMITRIPTYLINE HYDROCHLORIDE [Concomitant]
     Indication: NECK PAIN
     Route: 048
     Dates: start: 20040308
  10. AMITRIPTYLINE HYDROCHLORIDE [Concomitant]
     Route: 048
     Dates: start: 20040308
  11. ACETAMINOPHEN [Concomitant]
     Indication: PAIN
     Route: 048
     Dates: start: 20040720
  12. CHLORPHENIRAMINE MALEATE [Concomitant]
     Indication: RASH
     Route: 048
     Dates: start: 20000314
  13. SULFASALAZINE [Concomitant]
     Indication: RASH
     Route: 065
  14. BECLOMETHASONE DIPROPIONATE [Concomitant]
     Indication: ASTHMA
     Route: 065
  15. ZOPICLONE [Concomitant]
     Indication: STRESS
     Route: 048
     Dates: start: 20011002
  16. ZOPICLONE [Concomitant]
     Indication: PANIC DISORDER
     Route: 048
     Dates: start: 20011002
  17. PREDNISOLONE [Concomitant]
     Indication: ASTHMA
     Route: 048
     Dates: start: 20031222
  18. TIOTROPIUM BROMIDE [Concomitant]
     Indication: ASTHMA
     Route: 055
     Dates: start: 20031229
  19. TRIAMCINOLONE ACETONIDE [Concomitant]
     Indication: RHEUMATOID ARTHRITIS
     Route: 030
     Dates: start: 20040302

REACTIONS (33)
  - ASTHMA [None]
  - BALANCE DISORDER [None]
  - BUNION [None]
  - CEREBELLAR INFARCTION [None]
  - CEREBROVASCULAR ACCIDENT [None]
  - COAGULOPATHY [None]
  - COORDINATION ABNORMAL [None]
  - COUGH [None]
  - CREPITATIONS [None]
  - DIFFERENTIAL WHITE BLOOD CELL COUNT [None]
  - DIPLOPIA [None]
  - DISEASE RECURRENCE [None]
  - DRUG HYPERSENSITIVITY [None]
  - FALL [None]
  - FAMILY STRESS [None]
  - HAEMOPTYSIS [None]
  - HEADACHE [None]
  - HYPONATRAEMIA [None]
  - INCREASED TENDENCY TO BRUISE [None]
  - JOINT INJURY [None]
  - MALAISE [None]
  - NECK PAIN [None]
  - NYSTAGMUS [None]
  - PANIC DISORDER [None]
  - PARAESTHESIA [None]
  - PARTNER STRESS [None]
  - POSTMENOPAUSAL HAEMORRHAGE [None]
  - RESPIRATORY TRACT INFECTION [None]
  - RHEUMATOID ARTHRITIS [None]
  - SUPRAVENTRICULAR EXTRASYSTOLES [None]
  - URINARY TRACT INFECTION [None]
  - VISION BLURRED [None]
  - WHEEZING [None]
